FAERS Safety Report 7425839-X (Version None)
Quarter: 2011Q2

REPORT INFORMATION
  Report Type: 
  Country: None (occurrence: None)
  Receive Date: 20110420
  Receipt Date: 20110411
  Transmission Date: 20111010
  Serious: Yes (Disabling)
  Sender: FDA-Public Use
  Company Number: FR-ASTRAZENECA-2011SE21941

PATIENT
  Age: 21696 Day
  Sex: Female

DRUGS (5)
  1. FASLODEX [Suspect]
     Indication: BREAST CANCER METASTATIC
     Route: 030
     Dates: start: 20100818, end: 20110216
  2. ZOMETA [Suspect]
     Indication: BREAST CANCER METASTATIC
     Route: 030
     Dates: start: 20100414, end: 20100727
  3. AVASTIN [Suspect]
     Indication: BREAST CANCER METASTATIC
     Route: 042
     Dates: start: 20100414, end: 20100727
  4. AVASTIN [Suspect]
     Route: 042
     Dates: start: 20100818, end: 20110216
  5. ZOMETA [Suspect]
     Route: 030
     Dates: start: 20100818, end: 20110216

REACTIONS (1)
  - OSTEONECROSIS [None]
